FAERS Safety Report 21559593 (Version 1)
Quarter: 2022Q4

REPORT INFORMATION
  Report Type: Spontaneous
  Country: US (occurrence: US)
  Receive Date: 20221107
  Receipt Date: 20221107
  Transmission Date: 20230112
  Serious: Yes (Death)
  Sender: FDA-Public Use
  Company Number: US-CTI BIOPHARMA-2022US03162

PATIENT

DRUGS (10)
  1. VONJO [Suspect]
     Active Substance: PACRITINIB
     Indication: Myeloproliferative neoplasm
     Dosage: 200 MG, BID
     Route: 048
     Dates: start: 202209, end: 20221006
  2. ATORVASTATIN [Concomitant]
     Active Substance: ATORVASTATIN
  3. DRONABINOL [Concomitant]
     Active Substance: DRONABINOL
  4. FAMOTIDINE [Concomitant]
     Active Substance: FAMOTIDINE
  5. KLOR-CON [Concomitant]
     Active Substance: POTASSIUM CHLORIDE
  6. MAGOX [Concomitant]
  7. MIRTAZAPINE [Concomitant]
     Active Substance: MIRTAZAPINE
  8. STIOLTO RESPIMAT [Concomitant]
     Active Substance: OLODATEROL HYDROCHLORIDE\TIOTROPIUM BROMIDE MONOHYDRATE
  9. TRAMADOL [Concomitant]
     Active Substance: TRAMADOL
  10. TRIAMCINOLONE ACETONIDE [Concomitant]
     Active Substance: TRIAMCINOLONE ACETONIDE

REACTIONS (1)
  - Death [Fatal]

NARRATIVE: CASE EVENT DATE: 20221007
